FAERS Safety Report 14950097 (Version 1)
Quarter: 2018Q2

REPORT INFORMATION
  Report Type: Report from Study
  Country: None (occurrence: US)
  Receive Date: 20180530
  Receipt Date: 20180530
  Transmission Date: 20180711
  Serious: Yes (Hospitalization)
  Sender: FDA-Public Use
  Company Number: US-ABBVIE-18K-163-2364538-00

PATIENT
  Age: 69 Year
  Sex: Female

DRUGS (1)
  1. HUMIRA [Suspect]
     Active Substance: ADALIMUMAB
     Indication: RHEUMATOID ARTHRITIS
     Route: 058
     Dates: start: 20171216

REACTIONS (10)
  - Blood magnesium decreased [Unknown]
  - Nausea [Unknown]
  - Chest pain [Unknown]
  - Fatigue [Unknown]
  - Gastric ulcer [Unknown]
  - Blood pressure fluctuation [Unknown]
  - Extrasystoles [Recovering/Resolving]
  - Blood iron decreased [Unknown]
  - Anxiety [Unknown]
  - Blood potassium decreased [Unknown]

NARRATIVE: CASE EVENT DATE: 201805
